FAERS Safety Report 24933784 (Version 1)
Quarter: 2025Q1

REPORT INFORMATION
  Report Type: Spontaneous
  Country: IT (occurrence: IT)
  Receive Date: 20250206
  Receipt Date: 20250206
  Transmission Date: 20250408
  Serious: Yes (Hospitalization)
  Sender: EXELIXIS
  Company Number: None

PATIENT
  Age: 69 Year
  Sex: Male
  Weight: 72 kg

DRUGS (5)
  1. CABOMETYX [Suspect]
     Active Substance: CABOZANTINIB S-MALATE
     Indication: Renal neoplasm
     Dosage: 40 MG/KG, QD
     Route: 048
     Dates: start: 20230511, end: 20240125
  2. NIVOLUMAB [Concomitant]
     Active Substance: NIVOLUMAB
  3. LERCANIDIPINE HYDROCHLORIDE [Concomitant]
     Active Substance: LERCANIDIPINE HYDROCHLORIDE
     Indication: Hypertension
     Route: 048
  4. ESOMEPRAZOLE [Concomitant]
     Active Substance: ESOMEPRAZOLE
     Indication: Gastritis
     Dosage: 20 MG, QD
     Route: 048
  5. BUTHIAZIDE\CANRENOATE POTASSIUM [Concomitant]
     Active Substance: BUTHIAZIDE\CANRENOATE POTASSIUM
     Indication: Hypertension
     Route: 048

REACTIONS (4)
  - Asthenia [Recovered/Resolved]
  - Vomiting [Recovered/Resolved]
  - Hyponatraemia [Recovered/Resolved]
  - Nausea [Recovered/Resolved]

NARRATIVE: CASE EVENT DATE: 20240124
